FAERS Safety Report 15053362 (Version 3)
Quarter: 2018Q3

REPORT INFORMATION
  Report Type: Spontaneous
  Country: US (occurrence: US)
  Receive Date: 20180622
  Receipt Date: 20180823
  Transmission Date: 20181010
  Serious: Yes (Other)
  Sender: FDA-Public Use
  Company Number: US-BAYER-2018-118709

PATIENT
  Age: 28 Year
  Sex: Female
  Weight: 67.12 kg

DRUGS (5)
  1. DIFLUCAN [Concomitant]
     Active Substance: FLUCONAZOLE
     Indication: BACTERIAL VAGINOSIS
     Dosage: UNK UNK, QD
     Route: 048
  2. MIRENA [Suspect]
     Active Substance: LEVONORGESTREL
     Dosage: 20 MCG/24HR, CONT
     Route: 015
     Dates: start: 20141004, end: 20170623
  3. FLAGYL [Concomitant]
     Active Substance: METRONIDAZOLE\METRONIDAZOLE HYDROCHLORIDE
     Route: 048
  4. DOXYCYCLIN [Concomitant]
     Active Substance: DOXYCYCLINE
     Indication: FOREIGN BODY IN REPRODUCTIVE TRACT
     Route: 048
  5. VALTREX [Concomitant]
     Active Substance: VALACYCLOVIR HYDROCHLORIDE
     Indication: HERPES SIMPLEX
     Dosage: UNK UNK, QD
     Route: 048

REACTIONS (5)
  - Vaginal odour [None]
  - Genital herpes simplex [None]
  - Genital haemorrhage [None]
  - Foreign body in reproductive tract [None]
  - Bacterial vaginosis [None]
